FAERS Safety Report 5177150-8 (Version None)
Quarter: 2006Q4

REPORT INFORMATION
  Report Type: 
  Country: None (occurrence: None)
  Receive Date: 20061218
  Receipt Date: 20061213
  Transmission Date: 20070319
  Serious: Yes (Disabling)
  Sender: FDA-Public Use
  Company Number: ES-MERCK-0612ESP00023

PATIENT
  Age: 55 Year
  Sex: Female

DRUGS (4)
  1. FOSAMAX PLUS D [Suspect]
     Indication: OSTEOPOROSIS
     Route: 048
     Dates: start: 20061122, end: 20061129
  2. FOSAMAX PLUS D [Suspect]
     Indication: BONE DENSITY DECREASED
     Route: 048
     Dates: start: 20061122, end: 20061129
  3.  [Concomitant]
     Route: 048
     Dates: start: 19980101
  4.  [Concomitant]
     Route: 048
     Dates: start: 20061122

REACTIONS (4)
  - BACK PAIN [None]
  - CHEST PAIN [None]
  - PAIN [None]
  - PAIN IN EXTREMITY [None]
